FAERS Safety Report 12754406 (Version 2)
Quarter: 2016Q4

REPORT INFORMATION
  Report Type: Spontaneous
  Country: MX (occurrence: MX)
  Receive Date: 20160916
  Receipt Date: 20161002
  Transmission Date: 20170207
  Serious: Yes (Other)
  Sender: FDA-Public Use
  Company Number: PHHY2016MX127142

PATIENT
  Sex: Female
  Weight: 60 kg

DRUGS (4)
  1. RIVOTRIL [Concomitant]
     Active Substance: CLONAZEPAM
     Indication: INSOMNIA
     Dosage: 0.5 DF, UNK
     Route: 048
     Dates: start: 2011
  2. CO-DIOVAN [Suspect]
     Active Substance: HYDROCHLOROTHIAZIDE\VALSARTAN
     Indication: HYPERTENSION
     Dosage: 1 DF (THE PATIENT WAS PRESCRIBED CO-DIOVAN MONDAYS, WEDNESDAY, FRIDAYS AND SUNDAYS)
     Route: 048
     Dates: start: 2006
  3. SELOKEN ZOK [Concomitant]
     Indication: HYPERTENSION
     Dosage: 0.5 DF, UNK
     Route: 048
     Dates: start: 2006
  4. EUTIROX [Concomitant]
     Active Substance: LEVOTHYROXINE SODIUM
     Indication: HYPOTHYROIDISM
     Dosage: 1 DF (75 MG ON MONDAYS, WEDNESDAYS, FRIDAYS AND SUNDAYS AND 50 MG ON TUESDAYS, THURSDAYS AND SATURDA
     Route: 048

REACTIONS (4)
  - Spinal deformity [Recovered/Resolved]
  - Blood cholesterol increased [Not Recovered/Not Resolved]
  - Back pain [Recovered/Resolved]
  - Wrong technique in product usage process [Unknown]

NARRATIVE: CASE EVENT DATE: 2006
